FAERS Safety Report 14341770 (Version 3)
Quarter: 2018Q2

REPORT INFORMATION
  Report Type: Spontaneous
  Country: US (occurrence: US)
  Receive Date: 20180102
  Receipt Date: 20180604
  Transmission Date: 20180711
  Serious: No
  Sender: FDA-Public Use
  Company Number: US-BRISTOL-MYERS SQUIBB COMPANY-BMS-2017-116317

PATIENT
  Sex: Female
  Weight: 71.66 kg

DRUGS (1)
  1. YERVOY [Suspect]
     Active Substance: IPILIMUMAB
     Indication: MALIGNANT MELANOMA
     Dosage: 800 MG, Q6MO
     Route: 042
     Dates: start: 20170616

REACTIONS (3)
  - Arthritis [Unknown]
  - Off label use [Unknown]
  - Adverse event [Unknown]
